FAERS Safety Report 9369565 (Version 2)
Quarter: 2013Q3

REPORT INFORMATION
  Report Type: Spontaneous
  Country: US (occurrence: None)
  Receive Date: 20130621
  Receipt Date: 20130702
  Transmission Date: 20140515
  Serious: Yes (Other)
  Sender: FDA-Public Use
  Company Number: MC201300333

PATIENT
  Sex: 0

DRUGS (1)
  1. ANGIOMAX, ANGIOX (BIVALIRUDIN) INJECTION [Suspect]
     Indication: VASCULAR GRAFT
     Route: 042

REACTIONS (3)
  - Thrombosis in device [None]
  - Off label use [None]
  - Product quality issue [None]
